FAERS Safety Report 6187620-1 (Version None)
Quarter: 2009Q2

REPORT INFORMATION
  Report Type: 
  Country: None (occurrence: None)
  Receive Date: 20090511
  Receipt Date: 20090421
  Transmission Date: 20091009
  Serious: Yes (Disabling)
  Sender: FDA-Public Use
  Company Number: 8044991

PATIENT
  Age: 40 Year
  Sex: Male
  Weight: 133.8 kg

DRUGS (4)
  1. KEPPRA [Suspect]
     Indication: CONVULSION
     Dosage: 3500 MG PO
     Route: 048
     Dates: start: 20020101, end: 20090301
  2. GENERIC LEVETIRACETAM [Suspect]
     Dosage: 3500 MG
     Dates: start: 20090301
  3. ZONISAMIDE [Concomitant]
  4. CLONAZEPAM [Concomitant]

REACTIONS (6)
  - ARTHRALGIA [None]
  - DRUG DISPENSING ERROR [None]
  - MOVEMENT DISORDER [None]
  - MUSCULOSKELETAL PAIN [None]
  - PARTIAL SEIZURES [None]
  - PRODUCT QUALITY ISSUE [None]
